FAERS Safety Report 5324868-X (Version None)
Quarter: 2007Q2

REPORT INFORMATION
  Report Type: 
  Country: None (occurrence: None)
  Receive Date: 20070515
  Receipt Date: 20070502
  Transmission Date: 20071010
  Serious: Yes (Hospitalization, Other)
  Sender: FDA-Public Use
  Company Number: US-ELI_LILLY_AND_COMPANY-US200705000968

PATIENT
  Age: 51 Year
  Sex: Male

DRUGS (4)
  1. ZYPREXA [Suspect]
     Indication: SCHIZOPHRENIA, PARANOID TYPE
     Dosage: 20 MG, DAILY (1/D)
     Dates: start: 20070227, end: 20070311
  2. ZYPREXA [Suspect]
     Dosage: 20 MG, 2/D
     Dates: start: 20070312, end: 20070430
  3. CLOZARIL [Concomitant]
  4. GEODON [Concomitant]
     Dosage: 320 MG, DAILY (1/D)

REACTIONS (7)
  - BLOOD CREATINE PHOSPHOKINASE INCREASED [None]
  - FLUSHING [None]
  - NAUSEA [None]
  - NEUROLEPTIC MALIGNANT SYNDROME [None]
  - PRESCRIBED OVERDOSE [None]
  - PYREXIA [None]
  - WHITE BLOOD CELL COUNT INCREASED [None]
